FAERS Safety Report 14455721 (Version 1)
Quarter: 2018Q1

REPORT INFORMATION
  Report Type: Spontaneous
  Country: US (occurrence: US)
  Receive Date: 20180130
  Receipt Date: 20180130
  Transmission Date: 20180509
  Serious: Yes (Hospitalization)
  Sender: FDA-Public Use
  Company Number: US-CELGENEUS-USA-20180109975

PATIENT
  Sex: Female
  Weight: 101.7 kg

DRUGS (1)
  1. REVLIMID [Suspect]
     Active Substance: LENALIDOMIDE
     Indication: PLASMA CELL MYELOMA
     Dosage: 15 MILLIEQUIVALENTS
     Route: 048
     Dates: start: 201712

REACTIONS (2)
  - Abdominal distension [Unknown]
  - Cellulitis [Unknown]
